FAERS Safety Report 16564540 (Version 1)
Quarter: 2019Q3

REPORT INFORMATION
  Report Type: Spontaneous
  Country: US (occurrence: US)
  Receive Date: 20190530
  Receipt Date: 20190530
  Transmission Date: 20191004
  Serious: Yes (Death)
  Sender: FDA-Public Use
  Company Number: None

PATIENT
  Age: 73 Year
  Sex: Male
  Weight: 90.26 kg

DRUGS (1)
  1. WARFARIN [Suspect]
     Active Substance: WARFARIN
     Indication: ATRIAL FIBRILLATION
     Dates: start: 20120123, end: 20190409

REACTIONS (7)
  - Fall [None]
  - Hypertension [None]
  - Head injury [None]
  - Subdural haematoma [None]
  - Drug screen positive [None]
  - Drug abuse [None]
  - Somnolence [None]

NARRATIVE: CASE EVENT DATE: 20190409
